FAERS Safety Report 16587224 (Version 1)
Quarter: 2019Q3

REPORT INFORMATION
  Report Type: Spontaneous
  Country: US (occurrence: US)
  Receive Date: 20190717
  Receipt Date: 20190717
  Transmission Date: 20191004
  Serious: No
  Sender: FDA-Public Use
  Company Number: US-SA-2019SA191827

PATIENT
  Age: 28 Year
  Sex: Female

DRUGS (1)
  1. LANTUS SOLOSTAR [Suspect]
     Active Substance: INSULIN GLARGINE
     Dosage: 9-15 UNITS DAILY FOR A 5 DAY PERIOD
     Route: 065

REACTIONS (3)
  - Skin reaction [Unknown]
  - Rash macular [Unknown]
  - Injection site bruising [Unknown]
